FAERS Safety Report 7095160-0 (Version None)
Quarter: 2010Q4

REPORT INFORMATION
  Report Type: 
  Country: None (occurrence: None)
  Receive Date: 20101109
  Receipt Date: 20101109
  Transmission Date: 20110411
  Serious: Yes (Hospitalization)
  Sender: FDA-Public Use
  Company Number: None

PATIENT
  Age: 67 Year
  Sex: Male
  Weight: 75 kg

DRUGS (2)
  1. AZACITIDINE [Suspect]
  2. TARCEVA [Suspect]

REACTIONS (3)
  - COLON CANCER STAGE IV [None]
  - ILEUS [None]
  - SMALL INTESTINAL OBSTRUCTION [None]
